FAERS Safety Report 7388372-X (Version None)
Quarter: 2011Q2

REPORT INFORMATION
  Report Type: 
  Country: None (occurrence: None)
  Receive Date: 20110401
  Receipt Date: 20110321
  Transmission Date: 20111010
  Serious: Yes (Other)
  Sender: FDA-Public Use
  Company Number: PHHY2010FR16980

PATIENT
  Sex: Male

DRUGS (7)
  1. OXYNORM [Concomitant]
     Dosage: 6 DF, QD
     Dates: start: 20081101
  2. KETOCONAZOLE [Concomitant]
     Dosage: 200 MG, BID
     Dates: start: 20091023, end: 20091027
  3. PREVISCAN [Concomitant]
     Indication: PULMONARY EMBOLISM
     Dosage: 0.5 DF AND 3/4 DF EVERY DAY ALTERNATIVELY
     Dates: start: 20090101
  4. OXYCONTIN [Concomitant]
     Dosage: 1 DF, BID
     Dates: start: 20081101
  5. ZOMETA [Suspect]
     Dosage: UNK
     Dates: start: 20081110
  6. CYCLOPHOSPHAMIDE [Concomitant]
     Dosage: 50 MG DAILY
     Dates: start: 20081101, end: 20091001
  7. LEUPROLIDE ACETATE [Concomitant]
     Indication: NEOPLASM MALIGNANT
     Dosage: 12.5 MG, EVERY 3 MONTHS
     Dates: start: 20090201

REACTIONS (4)
  - TOOTH INFECTION [None]
  - TOOTH EXTRACTION [None]
  - OSTEONECROSIS OF JAW [None]
  - BONE LESION [None]
